FAERS Safety Report 7925463 (Version 2)
Quarter: 2014Q3

REPORT INFORMATION
  Report Type: Spontaneous
  Country: PT (occurrence: None)
  Receive Date: 20110411
  Receipt Date: 20140708
  Transmission Date: 20150326
  Serious: Yes (Hospitalization)
  Sender: FDA-Public Use
  Company Number: 882253

PATIENT
  Age: 74 Year
  Sex: Female
  Weight: 64 kg

DRUGS (10)
  1. CYCLOPHOSPHAMIDE. [Concomitant]
     Active Substance: CYCLOPHOSPHAMIDE
  2. DEXAMETHASONE DIPROPIONATE [Concomitant]
     Active Substance: DEXAMETHASONE DIPROPIONATE
  3. ONDANSETRON [Concomitant]
     Active Substance: ONDANSETRON
  4. DOCETAXEL [Suspect]
     Active Substance: DOCETAXEL
     Indication: BREAST CANCER
     Dosage: 80 MG/M 2 MILLIGRAM(S) /SQ. METER,
     Dates: start: 20101112, end: 20110201
  5. FLUCONAZOL [Concomitant]
     Active Substance: FLUCONAZOLE
  6. DOXORUBICIN [Concomitant]
     Active Substance: DOXORUBICIN
  7. NYSTATIN. [Concomitant]
     Active Substance: NYSTATIN
  8. PREGABALIN. [Concomitant]
     Active Substance: PREGABALIN
  9. PREDNISOLONE. [Concomitant]
     Active Substance: PREDNISOLONE
  10. METOCLOPRAMIDE. [Concomitant]
     Active Substance: METOCLOPRAMIDE

REACTIONS (7)
  - Diarrhoea [None]
  - Generalised oedema [None]
  - Myalgia [None]
  - Rash [None]
  - Bone pain [None]
  - Peripheral sensorimotor neuropathy [None]
  - Epistaxis [None]

NARRATIVE: CASE EVENT DATE: 201011
